FAERS Safety Report 5615073-8 (Version None)
Quarter: 2008Q1

REPORT INFORMATION
  Report Type: 
  Country: None (occurrence: None)
  Receive Date: 20080205
  Receipt Date: 20080205
  Transmission Date: 20080703
  Serious: Yes (Other)
  Sender: FDA-Public Use
  Company Number: None

PATIENT
  Sex: Female
  Weight: 89.8122 kg

DRUGS (1)
  1. VERDESO [Suspect]
     Indication: KERATOSIS FOLLICULAR
     Dosage: TWICE DAILY TOP
     Route: 061
     Dates: start: 20071003, end: 20080117

REACTIONS (1)
  - CONVULSION [None]
